FAERS Safety Report 19097548 (Version 1)
Quarter: 2021Q2

REPORT INFORMATION
  Report Type: Spontaneous
  Country: US (occurrence: US)
  Receive Date: 20210406
  Receipt Date: 20210406
  Transmission Date: 20210717
  Serious: Yes (Hospitalization)
  Sender: FDA-Public Use
  Company Number: None

PATIENT
  Age: 46 Year
  Sex: Female

DRUGS (1)
  1. VERZENIO [Suspect]
     Active Substance: ABEMACICLIB
     Indication: BREAST CANCER FEMALE
     Route: 048
     Dates: start: 20191116

REACTIONS (5)
  - Diarrhoea [None]
  - Therapy interrupted [None]
  - Hot flush [None]
  - Hip arthroplasty [None]
  - Onychoclasis [None]

NARRATIVE: CASE EVENT DATE: 20210405
